FAERS Safety Report 13194147 (Version 1)
Quarter: 2017Q1

REPORT INFORMATION
  Report Type: Spontaneous
  Country: GB (occurrence: GB)
  Receive Date: 20170207
  Receipt Date: 20170207
  Transmission Date: 20170428
  Serious: Yes (Life-Threatening)
  Sender: FDA-Public Use
  Company Number: GB-JNJFOC-20170205545

PATIENT
  Age: 79 Year
  Weight: 70 kg

DRUGS (14)
  1. XARELTO [Suspect]
     Active Substance: RIVAROXABAN
     Indication: ATRIAL FIBRILLATION
     Route: 048
     Dates: start: 20161122
  2. DIGOXIN. [Concomitant]
     Active Substance: DIGOXIN
     Dosage: DOSAGE: UNKNOWN
     Route: 065
  3. BETNOVATE [Concomitant]
     Active Substance: BETAMETHASONE
     Dosage: DOSAGE: UNKNOWN
     Route: 065
  4. LACTULOSE. [Concomitant]
     Active Substance: LACTULOSE
     Dosage: DOSAGE: UNKNOWN
     Route: 065
  5. E45 [Concomitant]
     Active Substance: LANOLIN\LIGHT MINERAL OIL\PARAFFIN
     Dosage: DOSAGE: UNKNOWN
     Route: 065
  6. BALNEUM [Concomitant]
     Dosage: DOSAGE: UNKNOWN
     Route: 065
  7. DERMOL [Concomitant]
     Active Substance: BENZALKONIUM CHLORIDE\CHLORHEXIDINE HYDROCHLORIDE\ISOPROPYL MYRISTATE\PARAFFIN
     Dosage: DOSAGE:UNKNOWN
     Route: 065
  8. CHLORPHENAMINE [Concomitant]
     Active Substance: CHLORPHENIRAMINE MALEATE
     Dosage: DOSAGE: UNKNOWN
     Route: 065
  9. QUININE SULFATE. [Concomitant]
     Active Substance: QUININE SULFATE
     Dosage: DOSAGE: UNKNOWN
     Route: 065
  10. BISOPROLOL [Concomitant]
     Active Substance: BISOPROLOL
     Dosage: DOSAGE: UNKNOWN
     Route: 065
  11. COCODAMOL [Concomitant]
     Active Substance: ACETAMINOPHEN\CODEINE PHOSPHATE
     Dosage: DOSAGE: UNKNOWN
     Route: 065
  12. TEMAZEPAM. [Concomitant]
     Active Substance: TEMAZEPAM
     Dosage: DOSAGE: UNKNOWN
     Route: 065
  13. PHENYTOIN. [Concomitant]
     Active Substance: PHENYTOIN
     Dosage: DOSAGE: UNKNOWN
     Route: 065
  14. IBUPROFEN. [Concomitant]
     Active Substance: IBUPROFEN
     Dosage: DOSAGE: UNKNOWN
     Route: 065

REACTIONS (3)
  - Fall [Unknown]
  - Haemorrhage intracranial [Unknown]
  - Head injury [Unknown]

NARRATIVE: CASE EVENT DATE: 20170123
